FAERS Safety Report 8677437 (Version 2)
Quarter: 2012Q4

REPORT INFORMATION
  Report Type: 
  Country: NO (occurrence: NO)
  Receive Date: 20120723
  Receipt Date: 20121003
  Transmission Date: 20130627
  Serious: Yes (Disabling, Other)
  Sender: FDA-Public Use
  Company Number: PHHY2012NO061783

PATIENT
  Age: 60 None
  Sex: Male

DRUGS (6)
  1. ZOMETA [Suspect]
     Indication: NON-HODGKIN^S LYMPHOMA
     Dates: start: 2004
  2. ZOMETA [Suspect]
     Indication: OSTEOPOROSIS
  3. NEXIUM [Concomitant]
  4. DIOVAN [Concomitant]
  5. ZOLOFT [Concomitant]
  6. DUROGESIC [Concomitant]

REACTIONS (5)
  - Osteonecrosis of jaw [Not Recovered/Not Resolved]
  - Exposed bone in jaw [Unknown]
  - Breath odour [Unknown]
  - Bone pain [Unknown]
  - Erythema [Not Recovered/Not Resolved]
